FAERS Safety Report 11856826 (Version 1)
Quarter: 2015Q4

REPORT INFORMATION
  Report Type: Other
  Country: US (occurrence: US)
  Receive Date: 20151221
  Receipt Date: 20151221
  Transmission Date: 20160305
  Serious: No
  Sender: FDA-Public Use
  Company Number: US-MYLANLABS-2015M1035449

PATIENT
  Sex: Male
  Weight: 33.56 kg

DRUGS (1)
  1. GUANFACINE HYDROCHLORIDE EXTENDED-RELEASE TABLETS [Suspect]
     Active Substance: GUANFACINE HYDROCHLORIDE
     Indication: ATTENTION DEFICIT/HYPERACTIVITY DISORDER
     Dosage: 1 MG, AM
     Dates: start: 20150713, end: 20150715

REACTIONS (6)
  - Psychomotor hyperactivity [Recovered/Resolved]
  - Product substitution issue [None]
  - Abdominal pain upper [Unknown]
  - Movement disorder [Recovered/Resolved]
  - Tic [Recovered/Resolved]
  - Headache [Unknown]

NARRATIVE: CASE EVENT DATE: 2015
